FAERS Safety Report 5887872-9 (Version None)
Quarter: 2008Q3

REPORT INFORMATION
  Report Type: 
  Country: None (occurrence: None)
  Receive Date: 20080916
  Receipt Date: 20080827
  Transmission Date: 20090109
  Serious: Yes (Disabling, Other)
  Sender: FDA-Public Use
  Company Number: US200704001510

PATIENT
  Age: 72 Year
  Sex: Female
  Weight: 66.7 kg

DRUGS (29)
  1. FORTEO [Suspect]
     Indication: OSTEOPOROSIS
     Dosage: 20 UG, DAILY (1 D)
     Dates: start: 20050701, end: 20070301
  2. FORTEO [Suspect]
     Indication: OSTEOPOROSIS
     Dosage: 20 UG, DAILY (1 D)
     Dates: end: 20080301
  3. FORTEO [Suspect]
     Indication: OSTEOPOROSIS
     Dosage: 20 UG, DAILY (1 D)
     Dates: start: 20070101
  4. FORTEO [Suspect]
  5. NEURONTIN [Concomitant]
  6. PERCOCET (OXYCODONE HYDROCHLORIDE, PARACETAMOL) TABLET [Concomitant]
  7. POTASSIUM CHLORIDE [Concomitant]
  8. CALCIUM (CALCIUM) [Concomitant]
  9. XANAX [Concomitant]
  10. VITAMIN D [Concomitant]
  11. VITAMIN B12 [Concomitant]
  12. VITAMIN B2 (RIBOFLAVIN) [Concomitant]
  13. FOLIC ACID [Concomitant]
  14. MAGNESIUM (MAGNESIUM) [Concomitant]
  15. CYMBALTA [Concomitant]
  16. GLYCOLAX (MACROGOL) [Concomitant]
  17. LYRICA [Concomitant]
  18. AMITRIPTYLINE HYDROCHLORIDE [Concomitant]
  19. KEPPRA [Concomitant]
  20. DILAUDID [Concomitant]
  21. LIDODERM (LIDOCAINE) PATCH [Concomitant]
  22. DEVROM (BISMUTH SUBGALLATE) [Concomitant]
  23. CELEBREX [Concomitant]
  24. EVOXAC [Concomitant]
  25. PLAQUENIL /NET/ (HYDROXYCHLOROQUINE PHOSPHATE) [Concomitant]
  26. METHOTREXATE [Concomitant]
  27. IMURAN [Concomitant]
  28. HUMIRA [Concomitant]
  29. . [Concomitant]

REACTIONS (47)
  - ARACHNOIDITIS [None]
  - ARTHRALGIA [None]
  - ARTHRITIS [None]
  - ARTHROPATHY [None]
  - BLOOD CALCIUM INCREASED [None]
  - BLOOD GLUCOSE INCREASED [None]
  - BURSITIS [None]
  - CARTILAGE INJURY [None]
  - CATHETER SITE HAEMORRHAGE [None]
  - CONSTIPATION [None]
  - DEVICE FAILURE [None]
  - DRUG INEFFECTIVE [None]
  - ENTEROCOCCAL INFECTION [None]
  - ERYTHEMA [None]
  - FALL [None]
  - FATIGUE [None]
  - FOOT FRACTURE [None]
  - GAIT DISTURBANCE [None]
  - GASTROINTESTINAL MOTILITY DISORDER [None]
  - HEADACHE [None]
  - INSOMNIA [None]
  - JOINT EFFUSION [None]
  - JOINT SWELLING [None]
  - LUMBAR RADICULOPATHY [None]
  - MUSCLE ATROPHY [None]
  - MYALGIA [None]
  - NAUSEA [None]
  - NERVOUS SYSTEM DISORDER [None]
  - NEUROMA [None]
  - NEUROPATHY PERIPHERAL [None]
  - PAIN [None]
  - PAIN IN EXTREMITY [None]
  - PIRIFORMIS SYNDROME [None]
  - POST LUMBAR PUNCTURE SYNDROME [None]
  - POST PROCEDURAL HAEMORRHAGE [None]
  - PROCEDURAL NAUSEA [None]
  - PROCEDURAL PAIN [None]
  - PULSE ABNORMAL [None]
  - SCAR [None]
  - SEDATION [None]
  - SLEEP DISORDER [None]
  - SOMNOLENCE [None]
  - SYNOVITIS [None]
  - TREATMENT FAILURE [None]
  - URINARY RETENTION [None]
  - VOMITING [None]
  - WRIST FRACTURE [None]
